FAERS Safety Report 17894986 (Version 1)
Quarter: 2020Q2

REPORT INFORMATION
  Report Type: Spontaneous
  Country: US (occurrence: US)
  Receive Date: 20200615
  Receipt Date: 20200615
  Transmission Date: 20200714
  Serious: Yes (Hospitalization, Other)
  Sender: FDA-Public Use
  Company Number: US-ACCORD-185158

PATIENT
  Age: 88 Year
  Sex: Male

DRUGS (3)
  1. LEVETIRACETAM. [Suspect]
     Active Substance: LEVETIRACETAM
     Indication: SEIZURE PROPHYLAXIS
     Dosage: ADMINISTERED IN THE RIGHT IV LINE
     Route: 042
  2. NICARDIPINE [Suspect]
     Active Substance: NICARDIPINE
     Indication: BLOOD PRESSURE INCREASED
     Dosage: NICARDIPINE WAS INITIATED THROUGH THE RIGHT ANTECUBITAL FOSSA FOR 37 MINUTES
  3. ALTEPLASE. [Suspect]
     Active Substance: ALTEPLASE
     Indication: ISCHAEMIC STROKE
     Dosage: ALTEPLASE WAS ADMINISTERED THROUGH THE LEFT ANTECUBITAL FOSSA

REACTIONS (8)
  - Injection site extravasation [Recovered/Resolved]
  - Injection site haematoma [Recovered/Resolved]
  - Injection site oedema [Recovered/Resolved]
  - Hypertension [Recovered/Resolved]
  - Injection site vesicles [Recovered/Resolved]
  - Haemorrhage [Recovered/Resolved]
  - Skin laceration [Recovered/Resolved]
  - Injection site pain [Recovered/Resolved]
